FAERS Safety Report 5965797-8 (Version None)
Quarter: 2008Q4

REPORT INFORMATION
  Report Type: 
  Country: None (occurrence: None)
  Receive Date: 20081125
  Receipt Date: 20081114
  Transmission Date: 20090506
  Serious: Yes (Hospitalization)
  Sender: FDA-Public Use
  Company Number: CH-MERCK-0811USA02261

PATIENT
  Age: 50 Year
  Sex: Female
  Weight: 60 kg

DRUGS (4)
  1. DECADRON [Suspect]
     Indication: EVANS SYNDROME
     Route: 048
  2. DECADRON [Suspect]
     Route: 048
  3. TRANEXAMIC ACID [Suspect]
     Route: 048
  4. GLOBULIN, IMMUNE [Concomitant]
     Route: 065

REACTIONS (2)
  - DRUG INEFFECTIVE [None]
  - THROMBOSIS [None]
